FAERS Safety Report 21728503 (Version 1)
Quarter: 2022Q4

REPORT INFORMATION
  Report Type: Spontaneous
  Country: JP (occurrence: JP)
  Receive Date: 20221214
  Receipt Date: 20221214
  Transmission Date: 20230112
  Serious: Yes (Hospitalization, Other)
  Sender: FDA-Public Use
  Company Number: JP-PFIZER INC-PV202200119218

PATIENT

DRUGS (1)
  1. LORBRENA [Suspect]
     Active Substance: LORLATINIB
     Dosage: 100 MG, DAILY
     Dates: start: 20221122

REACTIONS (3)
  - Suicide attempt [Unknown]
  - Psychotic disorder [Unknown]
  - Affect lability [Unknown]

NARRATIVE: CASE EVENT DATE: 20221130
